FAERS Safety Report 7928353-8 (Version None)
Quarter: 2011Q4

REPORT INFORMATION
  Report Type: 
  Country: None (occurrence: None)
  Receive Date: 20111118
  Receipt Date: 20111110
  Transmission Date: 20120403
  Serious: Yes (Other)
  Sender: FDA-Public Use
  Company Number: PHHY2011US100206

PATIENT
  Age: 42 Year
  Sex: Male

DRUGS (3)
  1. AMIODARONE HCL [Concomitant]
  2. HEPARIN [Suspect]
  3. PROPOFOL [Concomitant]

REACTIONS (4)
  - DILUTIONAL COAGULOPATHY [None]
  - HEPARIN-INDUCED THROMBOCYTOPENIA [None]
  - COAGULATION TIME PROLONGED [None]
  - HAEMORRHAGE [None]
